FAERS Safety Report 20952677 (Version 1)
Quarter: 2022Q2

REPORT INFORMATION
  Report Type: Spontaneous
  Country: US (occurrence: US)
  Receive Date: 20220613
  Receipt Date: 20220613
  Transmission Date: 20220721
  Serious: No
  Sender: FDA-Public Use
  Company Number: US-BRISTOL-MYERS SQUIBB COMPANY-2022-056917

PATIENT
  Age: 51 Year
  Sex: Male
  Weight: 107.9 kg

DRUGS (1)
  1. REVLIMID [Suspect]
     Active Substance: LENALIDOMIDE
     Indication: Plasma cell myeloma
     Dosage: DOSE : 10 MG;  3 WEEKS ON 1 WEEK OFF
     Route: 048
     Dates: start: 202103

REACTIONS (1)
  - White blood cell count decreased [Unknown]
